FAERS Safety Report 24951256 (Version 4)
Quarter: 2025Q2

REPORT INFORMATION
  Report Type: Report from Study
  Country: CO (occurrence: CO)
  Receive Date: 20250210
  Receipt Date: 20250513
  Transmission Date: 20250717
  Serious: Yes (Hospitalization, Other)
  Sender: JOHNSON AND JOHNSON
  Company Number: CO-JNJFOC-20250194361

PATIENT
  Age: 35 Year
  Sex: Male
  Weight: 80 kg

DRUGS (7)
  1. INVEGA TRINZA [Suspect]
     Active Substance: PALIPERIDONE PALMITATE
     Indication: Schizophrenia
     Dosage: LAST ADMINISTERED DATE:05-DEC-2024
     Route: 030
     Dates: start: 20240403
  2. INVEGA TRINZA [Suspect]
     Active Substance: PALIPERIDONE PALMITATE
  3. INVEGA TRINZA [Suspect]
     Active Substance: PALIPERIDONE PALMITATE
  4. CLOZAPINE [Concomitant]
     Active Substance: CLOZAPINE
     Indication: Product used for unknown indication
  5. ESCITALOPRAM [Concomitant]
     Active Substance: ESCITALOPRAM OXALATE
     Indication: Product used for unknown indication
  6. BIPERIDEN [Concomitant]
     Active Substance: BIPERIDEN
     Indication: Product used for unknown indication
  7. DIPYRONE [Concomitant]
     Active Substance: DIPYRONE
     Indication: Product used for unknown indication

REACTIONS (5)
  - Seizure [Not Recovered/Not Resolved]
  - Akathisia [Not Recovered/Not Resolved]
  - Dystonia [Unknown]
  - Dysphonia [Not Recovered/Not Resolved]
  - Treatment noncompliance [Unknown]

NARRATIVE: CASE EVENT DATE: 20241201
